FAERS Safety Report 7575185-9 (Version None)
Quarter: 2011Q2

REPORT INFORMATION
  Report Type: 
  Country: None (occurrence: None)
  Receive Date: 20110627
  Receipt Date: 20081105
  Transmission Date: 20111010
  Serious: Yes (Death, Other)
  Sender: FDA-Public Use
  Company Number: US-BAYER-2011-010206

PATIENT
  Age: 66 Year
  Sex: Female
  Weight: 95 kg

DRUGS (12)
  1. TRASYLOL [Suspect]
     Indication: PRODUCT USED FOR UNKNOWN INDICATION
     Dosage: UNK
     Route: 042
     Dates: start: 20000922
  2. DIGOXIN [Concomitant]
     Dosage: 0.125MG
     Route: 048
     Dates: start: 20000915
  3. HYDROCHLOROTHIAZIDE [Concomitant]
     Dosage: 25 MG, QD
     Route: 048
  4. COUMADIN [Concomitant]
     Dosage: 2 MG, QD
     Route: 048
     Dates: start: 20000914
  5. DIURIL [Concomitant]
     Dosage: 500 MG, TID
     Route: 042
     Dates: start: 20000909
  6. ZOCOR [Concomitant]
     Dosage: 20 MG, QD
     Route: 048
     Dates: start: 20000914
  7. NIFEREX [Concomitant]
     Dosage: 1 TWICE DAILY
     Route: 048
  8. EPOGEN [Concomitant]
     Dosage: 5000 UNITS 3X WEEK
     Route: 058
     Dates: start: 20000909
  9. TOPROL-XL [Concomitant]
     Dosage: 50 MG, QD
     Route: 048
     Dates: start: 20000909
  10. NEPHROVITE [VIT C,VIT H,B5,B12,B9,B3,B6,B2,B1 HCL] [Concomitant]
     Dosage: 1 DAILY
     Route: 048
     Dates: start: 20000914
  11. LASIX [Concomitant]
     Dosage: 100 MG, TID
     Route: 042
     Dates: start: 20000909
  12. PRINIVIL [Concomitant]
     Dosage: 5 MG, QD
     Route: 048

REACTIONS (9)
  - RENAL FAILURE [None]
  - EMOTIONAL DISTRESS [None]
  - STRESS [None]
  - ANXIETY [None]
  - FEAR [None]
  - DEATH [None]
  - UNEVALUABLE EVENT [None]
  - PAIN [None]
  - INJURY [None]
